FAERS Safety Report 5485262-4 (Version None)
Quarter: 2007Q4

REPORT INFORMATION
  Report Type: 
  Country: None (occurrence: None)
  Receive Date: 20071010
  Receipt Date: 20071010
  Transmission Date: 20080405
  Serious: No
  Sender: FDA-Public Use
  Company Number: None

PATIENT
  Age: 40 Year
  Sex: Male
  Weight: 111.1313 kg

DRUGS (1)
  1. CYMBALTA [Suspect]
     Indication: DEPRESSION
     Dosage: 60MG  DAILY  PO
     Route: 048
     Dates: start: 20060315, end: 20070925

REACTIONS (3)
  - ABDOMINAL DISCOMFORT [None]
  - PARAESTHESIA [None]
  - VERTIGO [None]
